FAERS Safety Report 24896350 (Version 1)
Quarter: 2025Q1

REPORT INFORMATION
  Report Type: Spontaneous
  Country: US (occurrence: US)
  Receive Date: 20250128
  Receipt Date: 20250128
  Transmission Date: 20250408
  Serious: No
  Sender: MERCK
  Company Number: US-009507513-2501USA003933

PATIENT
  Sex: Female
  Weight: 74.8 kg

DRUGS (16)
  1. WINREVAIR [Suspect]
     Active Substance: SOTATERCEPT-CSRK
  2. REMODULIN [Suspect]
     Active Substance: TREPROSTINIL
     Indication: Pulmonary arterial hypertension
     Route: 058
     Dates: start: 20131126
  3. MIDODRINE HYDROCHLORIDE [Concomitant]
     Active Substance: MIDODRINE HYDROCHLORIDE
  4. PLAQUENIL [Concomitant]
     Active Substance: HYDROXYCHLOROQUINE SULFATE
  5. FOLIC ACID [Concomitant]
     Active Substance: FOLIC ACID
  6. ALDACTONE [Concomitant]
     Active Substance: SPIRONOLACTONE
  7. ENBREL [Concomitant]
     Active Substance: ETANERCEPT
  8. TYLENOL ARTHRITIS PAIN [Concomitant]
     Active Substance: ACETAMINOPHEN
  9. PREDNISONE [Concomitant]
     Active Substance: PREDNISONE
  10. METHOTREXATE [Concomitant]
     Active Substance: METHOTREXATE
  11. XARELTO [Concomitant]
     Active Substance: RIVAROXABAN
  12. OXYGEN [Concomitant]
     Active Substance: OXYGEN
  13. ADCIRCA [Concomitant]
     Active Substance: TADALAFIL
  14. FOSAMAX [Concomitant]
     Active Substance: ALENDRONATE SODIUM
  15. DIGOXIN [Concomitant]
     Active Substance: DIGOXIN
  16. CALCIUM CITRATE\CHOLECALCIFEROL [Concomitant]
     Active Substance: CALCIUM CITRATE\CHOLECALCIFEROL

REACTIONS (1)
  - Blood pressure decreased [Unknown]
